FAERS Safety Report 10613300 (Version 1)
Quarter: 2014Q4

REPORT INFORMATION
  Report Type: Spontaneous
  Country: CH (occurrence: CH)
  Receive Date: 20141128
  Receipt Date: 20141128
  Transmission Date: 20150529
  Serious: Yes (Hospitalization, Other)
  Sender: FDA-Public Use
  Company Number: CH-009507513-1411CHE012672

PATIENT
  Age: 65 Year
  Sex: Female
  Weight: 70 kg

DRUGS (2)
  1. FOSAMAX [Suspect]
     Active Substance: ALENDRONATE SODIUM
     Dosage: 70 MG, QW
     Route: 048
     Dates: start: 2002, end: 2007
  2. PROLIA [Suspect]
     Active Substance: DENOSUMAB
     Dosage: ONCE PER 6 MONTHS
     Route: 058
     Dates: start: 201302

REACTIONS (2)
  - Atypical fracture [Recovering/Resolving]
  - Atypical fracture [Recovered/Resolved]

NARRATIVE: CASE EVENT DATE: 2012
